FAERS Safety Report 21312433 (Version 1)
Quarter: 2022Q3

REPORT INFORMATION
  Report Type: Spontaneous
  Country: DK (occurrence: DK)
  Receive Date: 20220909
  Receipt Date: 20220909
  Transmission Date: 20221027
  Serious: Yes (Disabling)
  Sender: FDA-Public Use
  Company Number: None

PATIENT
  Age: 9 Decade
  Sex: Male

DRUGS (1)
  1. TOBRADEX [Suspect]
     Active Substance: DEXAMETHASONE\TOBRAMYCIN
     Indication: Conjunctivitis
     Dosage: 3 DRP, QD (DROP (1/12 MILLILITRE) (3 GTT IN EACH EYE A DAY)
     Route: 050
     Dates: start: 20180910, end: 20200922

REACTIONS (4)
  - Visual impairment [Not Recovered/Not Resolved]
  - Blindness unilateral [Not Recovered/Not Resolved]
  - Glaucoma [Not Recovered/Not Resolved]
  - Intraocular pressure increased [Recovered/Resolved]

NARRATIVE: CASE EVENT DATE: 20200915
